FAERS Safety Report 15700450 (Version 2)
Quarter: 2018Q4

REPORT INFORMATION
  Report Type: Spontaneous
  Country: CN (occurrence: CN)
  Receive Date: 20181207
  Receipt Date: 20181222
  Transmission Date: 20190205
  Serious: Yes (Other)
  Sender: FDA-Public Use
  Company Number: CN-BAYER-2018-223057

PATIENT
  Age: 69 Year
  Sex: Male

DRUGS (3)
  1. BETALOC [METOPROLOL TARTRATE] [Concomitant]
     Active Substance: METOPROLOL TARTRATE
     Dosage: UNK, QD
     Route: 048
     Dates: start: 201709
  2. BAYASPIRIN 100 MG [Suspect]
     Active Substance: ASPIRIN
     Dosage: UNK, QD
     Route: 048
     Dates: start: 201709, end: 20181129
  3. ATORVASTATIN [Concomitant]
     Active Substance: ATORVASTATIN
     Dosage: 1 DF, QD,AT NIGHT
     Route: 048

REACTIONS (2)
  - Nephrolithiasis [None]
  - Blood urine present [None]

NARRATIVE: CASE EVENT DATE: 201811
